FAERS Safety Report 4674454-X (Version None)
Quarter: 2005Q2

REPORT INFORMATION
  Report Type: 
  Country: None (occurrence: None)
  Receive Date: 20050524
  Receipt Date: 20050510
  Transmission Date: 20051028
  Serious: Yes (Other)
  Sender: FDA-Public Use
  Company Number: USA050291236

PATIENT
  Age: 25 Year
  Sex: Female
  Weight: 68 kg

DRUGS (7)
  1. CYMBALTA [Suspect]
     Indication: DEPRESSION
     Dosage: 30 MG DAY
     Dates: start: 20050123, end: 20050213
  2. ZOMIG [Concomitant]
  3. AXERT [Concomitant]
  4. IMITREX [Concomitant]
  5. EXCEDRIN (MIGRAINE) [Concomitant]
  6. MAXALT (RIZATRIPTAN) [Concomitant]
  7. RELPAX (ELETRIPTAN HYDROROMIDE) [Concomitant]

REACTIONS (6)
  - CONVULSION [None]
  - DRUG INEFFECTIVE [None]
  - LOSS OF CONSCIOUSNESS [None]
  - MIGRAINE [None]
  - MUSCLE TIGHTNESS [None]
  - URINARY INCONTINENCE [None]
